FAERS Safety Report 8275517 (Version 6)
Quarter: 2013Q1

REPORT INFORMATION
  Report Type: Spontaneous
  Country: US (occurrence: US)
  Receive Date: 20111205
  Receipt Date: 20130314
  Transmission Date: 20140127
  Serious: Yes (Hospitalization, Other)
  Sender: FDA-Public Use
  Company Number: US-ASTRAZENECA-2011SE66006

PATIENT
  Age: 52 Year
  Sex: Male

DRUGS (4)
  1. NEXIUM [Suspect]
     Indication: GASTROOESOPHAGEAL REFLUX DISEASE
     Route: 048
  2. NEXIUM [Suspect]
     Indication: BARRETT^S OESOPHAGUS
     Route: 048
  3. PRILOSEC [Suspect]
     Route: 048
  4. PRILOSEC OTC [Suspect]
     Route: 048

REACTIONS (11)
  - Cerebrovascular accident [Unknown]
  - Osteomyelitis [Unknown]
  - Road traffic accident [Unknown]
  - Gastrooesophageal reflux disease [Unknown]
  - Gastric disorder [Unknown]
  - Pharyngeal disorder [Unknown]
  - Oesophageal disorder [Unknown]
  - Dyspepsia [Unknown]
  - Drug dose omission [Unknown]
  - Drug ineffective [Unknown]
  - Drug effect incomplete [Unknown]
